FAERS Safety Report 7355402-0 (Version None)
Quarter: 2011Q1

REPORT INFORMATION
  Report Type: 
  Country: None (occurrence: None)
  Receive Date: 20110316
  Receipt Date: 20110217
  Transmission Date: 20110831
  Serious: No
  Sender: FDA-Public Use
  Company Number: US-B.I. PHARMACEUTICALS,INC./RIDGEFIELD-2011-BP-03085BP

PATIENT
  Sex: Female

DRUGS (10)
  1. ASPIRIN [Concomitant]
     Indication: ATRIAL FIBRILLATION
     Dosage: 81 MG
     Route: 048
     Dates: start: 20110125
  2. CENTRUM SILVER [Concomitant]
     Indication: PROPHYLAXIS
     Route: 048
  3. PRADAXA [Suspect]
     Indication: ATRIAL FIBRILLATION
     Dosage: 300 MG
     Route: 048
     Dates: start: 20110126
  4. CALCIUM [Concomitant]
     Indication: OSTEOPOROSIS
     Dosage: 600 MG
     Route: 048
  5. CALTRATE + D [Concomitant]
     Indication: OSTEOPOROSIS
     Route: 048
  6. AMIODARONE HCL [Concomitant]
     Indication: ARRHYTHMIA
     Dates: start: 20110125
  7. ASPIRIN [Concomitant]
     Indication: PROPHYLAXIS
  8. VITAMIN D [Concomitant]
     Indication: OSTEOPOROSIS
     Dosage: 1000 U
     Route: 048
  9. BONIVA [Concomitant]
     Indication: OSTEOPOROSIS
  10. PACERONE [Concomitant]
     Indication: ATRIAL FIBRILLATION
     Dosage: 200 MG
     Route: 048

REACTIONS (9)
  - PERIPHERAL COLDNESS [None]
  - HAEMORRHOIDS [None]
  - PALPITATIONS [None]
  - CONSTIPATION [None]
  - NECK PAIN [None]
  - ERUCTATION [None]
  - DYSPNOEA [None]
  - ABDOMINAL DISTENSION [None]
  - HEADACHE [None]
